FAERS Safety Report 17877996 (Version 1)
Quarter: 2020Q2

REPORT INFORMATION
  Report Type: Spontaneous
  Country: US (occurrence: US)
  Receive Date: 20200609
  Receipt Date: 20200609
  Transmission Date: 20200714
  Serious: No
  Sender: FDA-Public Use
  Company Number: US-009507513-2006USA000742

PATIENT
  Sex: Female

DRUGS (1)
  1. KEYTRUDA [Suspect]
     Active Substance: PEMBROLIZUMAB
     Indication: NON-SMALL CELL LUNG CANCER
     Dosage: 200 MG EVERY 3 WEEKS
     Route: 041

REACTIONS (5)
  - Gingival pruritus [Recovering/Resolving]
  - Tooth loss [Unknown]
  - Frequent bowel movements [Recovering/Resolving]
  - Gingival swelling [Recovering/Resolving]
  - Pain in extremity [Recovering/Resolving]
